FAERS Safety Report 4665023-6 (Version None)
Quarter: 2005Q2

REPORT INFORMATION
  Report Type: 
  Country: None (occurrence: None)
  Receive Date: 20050517
  Receipt Date: 20050428
  Transmission Date: 20051028
  Serious: Yes (Hospitalization)
  Sender: FDA-Public Use
  Company Number: GBS050417254

PATIENT
  Age: 54 Year
  Sex: Male

DRUGS (3)
  1. PERGOLIDE MESYLATE [Suspect]
     Indication: PARKINSON'S DISEASE
     Dosage: 1.5 MG/ 3 DAY
  2. CO-CARELDOPA [Concomitant]
  3. CO-BENELDOPA [Concomitant]

REACTIONS (9)
  - ANTINUCLEAR ANTIBODY POSITIVE [None]
  - ASTHMA [None]
  - LYMPHADENOPATHY [None]
  - MASS [None]
  - MONOCYTOSIS [None]
  - OSTEITIS DEFORMANS [None]
  - PLEURAL EFFUSION [None]
  - PLEURAL FIBROSIS [None]
  - WEIGHT DECREASED [None]
